FAERS Safety Report 14013875 (Version 1)
Quarter: 2017Q3

REPORT INFORMATION
  Report Type: Report from Study
  Country: US (occurrence: US)
  Receive Date: 20170926
  Receipt Date: 20170926
  Transmission Date: 20171128
  Serious: Yes (Hospitalization)
  Sender: FDA-Public Use
  Company Number: US-GILEAD-2017-0294631

PATIENT
  Age: 64 Year
  Sex: Male
  Weight: 92.63 kg

DRUGS (1)
  1. LEDIPASVIR/SOFOSBUVIR [Suspect]
     Active Substance: LEDIPASVIR\SOFOSBUVIR
     Indication: CHRONIC HEPATITIS C
     Dosage: 1 DF, UNK
     Route: 048

REACTIONS (4)
  - Upper limb fracture [Not Recovered/Not Resolved]
  - Intentional dose omission [Recovered/Resolved]
  - Weight increased [Unknown]
  - Surgery [Unknown]
